FAERS Safety Report 7310422-7 (Version None)
Quarter: 2011Q1

REPORT INFORMATION
  Report Type: 
  Country: None (occurrence: None)
  Receive Date: 20110224
  Receipt Date: 20100802
  Transmission Date: 20110831
  Serious: No
  Sender: FDA-Public Use
  Company Number: US-BRISTOL-MYERS SQUIBB COMPANY-15225931

PATIENT
  Sex: Female

DRUGS (4)
  1. COZAAR [Suspect]
  2. JANUVIA [Suspect]
  3. JANUMET [Suspect]
  4. METFORMIN HCL [Suspect]

REACTIONS (1)
  - PRURITUS [None]
